FAERS Safety Report 5108973-9 (Version None)
Quarter: 2006Q3

REPORT INFORMATION
  Report Type: 
  Country: None (occurrence: None)
  Receive Date: 20060918
  Receipt Date: 20060901
  Transmission Date: 20061208
  Serious: Yes (Other)
  Sender: FDA-Public Use
  Company Number: US200609001412

PATIENT
  Sex: Female

DRUGS (5)
  1. FORTEO [Suspect]
     Indication: OSTEOPOROSIS
     Dates: start: 20040827
  2. FORTEO [Concomitant]
  3. SYNTHROID [Concomitant]
  4. DIOVAN [Concomitant]
  5. NIFEDIPINE [Concomitant]

REACTIONS (3)
  - BLOOD CALCIUM INCREASED [None]
  - CORNEAL TRANSPLANT [None]
  - PHARMACEUTICAL PRODUCT COMPLAINT [None]
